FAERS Safety Report 4656094-1 (Version None)
Quarter: 2005Q2

REPORT INFORMATION
  Report Type: 
  Country: None (occurrence: None)
  Receive Date: 20050509
  Receipt Date: 20050421
  Transmission Date: 20051028
  Serious: Yes (Other)
  Sender: FDA-Public Use
  Company Number: NL-AMGEN-UK129277

PATIENT
  Sex: Male
  Weight: 78 kg

DRUGS (7)
  1. ARANESP [Suspect]
     Indication: RENAL FAILURE CHRONIC
     Route: 058
     Dates: start: 20031112, end: 20050414
  2. SODIUM BICARBONATE [Concomitant]
     Route: 048
     Dates: start: 20030819
  3. ENALAPRIL MALEATE [Concomitant]
     Route: 048
     Dates: start: 20000819
  4. CALCICHEW [Concomitant]
     Route: 048
     Dates: start: 20000819
  5. ETALPHA [Concomitant]
     Route: 048
     Dates: start: 20030819
  6. SODIUM POLYSTYRENE SULFONATE [Concomitant]
     Route: 048
     Dates: start: 20030819
  7. ZOCOR [Concomitant]
     Route: 048
     Dates: start: 20030819

REACTIONS (11)
  - BLOOD PRESSURE DECREASED [None]
  - DIZZINESS [None]
  - ERYTHEMA [None]
  - FEELING ABNORMAL [None]
  - HEADACHE [None]
  - OEDEMA MUCOSAL [None]
  - PHARYNGEAL ERYTHEMA [None]
  - PHARYNGEAL OEDEMA [None]
  - PRURITUS [None]
  - SKIN BURNING SENSATION [None]
  - SWOLLEN TONGUE [None]
